FAERS Safety Report 9408433 (Version 1)
Quarter: 2013Q3

REPORT INFORMATION
  Report Type: Spontaneous
  Country: CA (occurrence: CA)
  Receive Date: 20130718
  Receipt Date: 20130718
  Transmission Date: 20140515
  Serious: Yes (Death, Hospitalization)
  Sender: FDA-Public Use
  Company Number: CA-BAXTER-2013BAX027577

PATIENT
  Age: 69 Year
  Sex: Male

DRUGS (1)
  1. DIANEAL PD4 SOLUTION WITH 1.5% DEXTROSE AND 2.5 MEQ/L CALCIUM [Suspect]
     Indication: RENAL FAILURE
     Route: 033
     Dates: end: 20130707

REACTIONS (8)
  - Cerebrovascular accident [Fatal]
  - Cardiac arrest [Fatal]
  - Loss of consciousness [Unknown]
  - Infection [Unknown]
  - Swelling [Unknown]
  - Fluid retention [Unknown]
  - General physical health deterioration [Unknown]
  - Dementia [Unknown]
